FAERS Safety Report 4837662-0 (Version None)
Quarter: 2005Q4

REPORT INFORMATION
  Report Type: 
  Country: None (occurrence: None)
  Receive Date: 20051128
  Receipt Date: 20050927
  Transmission Date: 20060501
  Serious: Yes (Hospitalization, Disabling)
  Sender: FDA-Public Use
  Company Number: US-MERCK-0509USA04405

PATIENT
  Age: 50 Year
  Sex: Male
  Weight: 114 kg

DRUGS (10)
  1. VIOXX [Suspect]
     Indication: ARTHRITIS
     Route: 048
     Dates: start: 20000816, end: 20020314
  2. ACETAMINOPHEN AND CODEINE [Concomitant]
     Route: 065
  3. METHOCARBAMOL [Concomitant]
     Route: 065
  4. ACETAMINOPHEN AND PROPOXYPHENE NAPSYLATE [Concomitant]
     Route: 065
  5. HYDROCODONE BITARTRATE [Concomitant]
     Route: 065
  6. SILVER [Concomitant]
     Route: 065
  7. TRIAMCINOLONE [Concomitant]
     Route: 065
  8. NITROLINGUAL [Concomitant]
     Route: 065
  9. NEXIUM [Concomitant]
     Route: 065
  10. ACCUPRIL [Concomitant]
     Route: 065

REACTIONS (16)
  - ANGINA PECTORIS [None]
  - BACK INJURY [None]
  - BLOOD CHOLESTEROL INCREASED [None]
  - CHOKING SENSATION [None]
  - CORONARY ARTERY STENOSIS [None]
  - DYSPNOEA [None]
  - FALL [None]
  - HEAD INJURY [None]
  - HYDRONEPHROSIS [None]
  - HYPERLIPIDAEMIA [None]
  - HYPERTENSION [None]
  - HYPOAESTHESIA [None]
  - MYOCARDIAL INFARCTION [None]
  - ORTHOSTATIC HYPOTENSION [None]
  - RASH [None]
  - SYNCOPE [None]
